FAERS Safety Report 6397493-X (Version None)
Quarter: 2009Q4

REPORT INFORMATION
  Report Type: 
  Country: None (occurrence: None)
  Receive Date: 20091012
  Receipt Date: 20091005
  Transmission Date: 20100525
  Serious: Yes (Other)
  Sender: FDA-Public Use
  Company Number: GB-BRISTOL-MYERS SQUIBB COMPANY-14807275

PATIENT
  Sex: Male

DRUGS (1)
  1. SUSTIVA LIQUID [Suspect]

REACTIONS (1)
  - TUBERCULOSIS [None]
